FAERS Safety Report 24397680 (Version 2)
Quarter: 2024Q4

REPORT INFORMATION
  Report Type: Spontaneous
  Country: EG (occurrence: EG)
  Receive Date: 20241004
  Receipt Date: 20241021
  Transmission Date: 20250115
  Serious: Yes (Other)
  Sender: TAKEDA
  Company Number: EG-JNJFOC-20241007284

PATIENT
  Sex: Male
  Weight: 82 kg

DRUGS (14)
  1. VELCADE [Suspect]
     Active Substance: BORTEZOMIB
     Indication: Plasma cell myeloma
     Dosage: 3.5 MILLIGRAM, 1/WEEK
     Route: 065
     Dates: start: 2016
  2. VELCADE [Suspect]
     Active Substance: BORTEZOMIB
     Dosage: 3.5 MILLIGRAM, Q2WEEKS
     Route: 065
  3. VELCADE [Suspect]
     Active Substance: BORTEZOMIB
     Dosage: 3.5 MILLIGRAM, Q3WEEKS
     Route: 065
  4. VELCADE [Suspect]
     Active Substance: BORTEZOMIB
     Dosage: 3.5 MILLIGRAM, MONTHLY
     Route: 065
  5. VELCADE [Suspect]
     Active Substance: BORTEZOMIB
     Dosage: UNK
     Route: 065
     Dates: end: 202212
  6. MOTINORM [Concomitant]
     Dosage: UNK
     Route: 065
  7. LINAGLIPTIN [Concomitant]
     Active Substance: LINAGLIPTIN
     Indication: Diabetes mellitus
     Dosage: 5 MILLIGRAM
     Route: 065
  8. IMMUNOMIDE [Concomitant]
     Indication: Plasma cell myeloma
     Dosage: 15 MILLIGRAM
     Route: 048
     Dates: start: 2016
  9. IMMUNOMIDE [Concomitant]
     Dosage: 10 MILLIGRAM
     Route: 048
  10. IMMUNOMIDE [Concomitant]
     Dosage: 5 MILLIGRAM
     Route: 048
  11. ELIQUIS [Concomitant]
     Active Substance: APIXABAN
     Indication: Coagulopathy
     Dosage: 2.5 MILLIGRAM
     Route: 048
  12. Calvin [Concomitant]
     Dosage: 1 DOSAGE FORM, QD
     Route: 065
  13. ZOVIRAX [Concomitant]
     Active Substance: ACYCLOVIR
     Dosage: 3 DOSAGE FORM, QD
     Route: 065
  14. BON-ONE [Concomitant]
     Dosage: 1 DOSAGE FORM, QD
     Route: 065

REACTIONS (4)
  - Plasma cell myeloma refractory [Unknown]
  - Coma [Unknown]
  - Spinal fracture [Unknown]
  - Drug ineffective [Unknown]
